FAERS Safety Report 9325148 (Version 2)
Quarter: 2013Q3

REPORT INFORMATION
  Report Type: Report from Study
  Country: AU (occurrence: AU)
  Receive Date: 20130603
  Receipt Date: 20130712
  Transmission Date: 20140515
  Serious: Yes (Death, Other)
  Sender: FDA-Public Use
  Company Number: AU-ROCHE-1230960

PATIENT
  Sex: Female
  Weight: 56 kg

DRUGS (8)
  1. XELODA [Suspect]
     Indication: PRODUCT USED FOR UNKNOWN INDICATION
     Route: 065
  2. HERCEPTIN [Suspect]
     Indication: PRODUCT USED FOR UNKNOWN INDICATION
     Dosage: LOADING DOSE
     Route: 065
  3. HERCEPTIN [Suspect]
     Dosage: MAINTENACE DOSE
     Route: 065
  4. EPIRUBICIN [Concomitant]
  5. CISPLATIN [Concomitant]
  6. IRINOTECAN [Concomitant]
  7. 5-FLUOROURACIL [Concomitant]
  8. OXALIPLATIN [Concomitant]

REACTIONS (3)
  - Malignant neoplasm progression [Fatal]
  - Peritoneal carcinoma metastatic [Unknown]
  - Weight decreased [Unknown]
